FAERS Safety Report 10674369 (Version 1)
Quarter: 2014Q4

REPORT INFORMATION
  Report Type: Spontaneous
  Country: US (occurrence: US)
  Receive Date: 20141224
  Receipt Date: 20141224
  Transmission Date: 20150529
  Serious: No
  Sender: FDA-Public Use
  Company Number: US-PFIZER INC-2014351887

PATIENT
  Age: 61 Year
  Sex: Female

DRUGS (1)
  1. XELJANZ [Suspect]
     Active Substance: TOFACITINIB CITRATE
     Indication: RHEUMATOID ARTHRITIS
     Dosage: 1 TAB, 2X/DAY
     Route: 048
     Dates: start: 20141124

REACTIONS (6)
  - Pain in extremity [Unknown]
  - Arthralgia [Unknown]
  - Activities of daily living impaired [Unknown]
  - Vulvovaginal dryness [Unknown]
  - Back pain [Unknown]
  - Movement disorder [Unknown]

NARRATIVE: CASE EVENT DATE: 20141204
